FAERS Safety Report 17711810 (Version 1)
Quarter: 2020Q2

REPORT INFORMATION
  Report Type: Spontaneous
  Country: FR (occurrence: FR)
  Receive Date: 20200427
  Receipt Date: 20200427
  Transmission Date: 20200714
  Serious: Yes (Life-Threatening, Hospitalization)
  Sender: FDA-Public Use
  Company Number: FR-PFIZER INC-2020167297

PATIENT
  Age: 78 Year
  Sex: Male

DRUGS (2)
  1. ZITHROMAX [Suspect]
     Active Substance: AZITHROMYCIN DIHYDRATE
     Indication: CORONAVIRUS INFECTION
     Dosage: 250 MG, 1X/DAY
     Route: 048
     Dates: start: 20200323, end: 20200326
  2. PLAQUENIL [Suspect]
     Active Substance: HYDROXYCHLOROQUINE SULFATE
     Indication: CORONAVIRUS INFECTION
     Dosage: 600 MG, 1X/DAY
     Route: 048
     Dates: start: 20200323, end: 20200326

REACTIONS (5)
  - Atrioventricular block first degree [Recovered/Resolved]
  - Bundle branch block left [Recovered/Resolved]
  - Electrocardiogram QT prolonged [Recovered/Resolved]
  - Product use in unapproved indication [Unknown]
  - Off label use [Unknown]

NARRATIVE: CASE EVENT DATE: 20200323
